FAERS Safety Report 17464931 (Version 1)
Quarter: 2020Q3

REPORT INFORMATION
  Report Type: Spontaneous
  Country: US (occurrence: US)
  Receive Date: 20200226
  Receipt Date: 20200226
  Transmission Date: 20201105
  Serious: No
  Sender: FDA-Public Use
  Company Number: US-ROCHE-2482650

PATIENT
  Sex: Female

DRUGS (2)
  1. ALECTINIB. [Suspect]
     Active Substance: ALECTINIB
     Indication: NON-SMALL CELL LUNG CANCER METASTATIC
     Dosage: ONGOING: NO
     Route: 048
  2. ALECTINIB. [Suspect]
     Active Substance: ALECTINIB
     Dosage: REDUCED DOSE ;ONGOING: YES
     Route: 048

REACTIONS (1)
  - Oedema [Recovering/Resolving]

NARRATIVE: CASE EVENT DATE: 201911
